FAERS Safety Report 4486608-6 (Version None)
Quarter: 2004Q4

REPORT INFORMATION
  Report Type: 
  Country: None (occurrence: None)
  Receive Date: 20041027
  Receipt Date: 20041019
  Transmission Date: 20050328
  Serious: Yes (Death)
  Sender: FDA-Public Use
  Company Number: US-BRISTOL-MYERS SQUIBB COMPANY-12741385

PATIENT
  Age: 75 Year

DRUGS (2)
  1. CAPTOPRIL [Suspect]
     Route: 048
  2. MORPHINE SULFATE [Suspect]
     Route: 048

REACTIONS (1)
  - COMPLETED SUICIDE [None]
